FAERS Safety Report 11009362 (Version 1)
Quarter: 2015Q2

REPORT INFORMATION
  Report Type: Spontaneous
  Country: DE (occurrence: None)
  Receive Date: 20150408
  Receipt Date: 20150408
  Transmission Date: 20150821
  Serious: Yes (Death)
  Sender: FDA-Public Use
  Company Number: NSR_02030_2015

PATIENT
  Sex: Male

DRUGS (11)
  1. LEVAMISOLE (LEVAMISOLE) [Suspect]
     Active Substance: LEVAMISOLE
     Indication: PRODUCT USED FOR UNKNOWN INDICATION
     Dosage: DF?NOT THE PRESCRIBED AMOUNT
  2. COCAINE (COCAINE) [Suspect]
     Active Substance: COCAINE
     Indication: PRODUCT USED FOR UNKNOWN INDICATION
     Dosage: DF ??NOT THE PRESCRIBED AMOUNT
  3. PHENACETIN (PHENACETIN) [Suspect]
     Active Substance: PHENACETIN
     Indication: PRODUCT USED FOR UNKNOWN INDICATION
     Dosage: DF?NOT THE PRESCRIBED AMOUNT
  4. BENZOYLECGONINE (BENZOYLECGONINE) [Suspect]
     Active Substance: BENZOYLECGONINE
     Indication: PRODUCT USED FOR UNKNOWN INDICATION
     Dosage: DF?NOT THE PRESCRIBED AMOUNT
  5. THEOPHYLLINE (THEOPHYLLINE) [Suspect]
     Active Substance: THEOPHYLLINE ANHYDROUS
     Indication: PRODUCT USED FOR UNKNOWN INDICATION
     Dosage: DF?NOT THE PRESCRIBED AMOUNT
  6. COCAETHYLENE [Suspect]
     Active Substance: COCAETHYLENE
     Indication: PRODUCT USED FOR UNKNOWN INDICATION
     Dosage: DF?NOT THE PRESCRIBED AMOUNT
  7. THEOBROMINE (THEOBROMINE) [Suspect]
     Active Substance: THEOBROMINE
     Indication: PRODUCT USED FOR UNKNOWN INDICATION
     Dosage: DF?NOT THE PRESCRIBED AMOUNT
  8. CAFFEINE (CAFFEINE) [Suspect]
     Active Substance: CAFFEINE
     Indication: PRODUCT USED FOR UNKNOWN INDICATION
     Dosage: DF?NOT THE PRESCRIBED AMOUNT
  9. ALCOHOL (ALCOHOL) [Suspect]
     Active Substance: ALCOHOL
     Indication: PRODUCT USED FOR UNKNOWN INDICATION
     Dosage: DF?NOT THE PRESCRIBED AMOUNT
  10. COTININE [Suspect]
     Active Substance: COTININE
     Indication: PRODUCT USED FOR UNKNOWN INDICATION
     Dosage: DF?NOT THE PRESCRIBED AMOUNT
  11. HYDROXYZINE (HYDROXYZINE) [Suspect]
     Active Substance: HYDROXYZINE HYDROCHLORIDE
     Indication: PRODUCT USED FOR UNKNOWN INDICATION
     Dosage: DF?NOT THE PRESCRIBED AMOUNT

REACTIONS (6)
  - Overdose [None]
  - Aggression [None]
  - Completed suicide [None]
  - Drug abuse [None]
  - Toxicity to various agents [None]
  - Gun shot wound [None]
